FAERS Safety Report 4591702-5 (Version None)
Quarter: 2005Q1

REPORT INFORMATION
  Report Type: 
  Country: None (occurrence: None)
  Receive Date: 20050218
  Receipt Date: 20050208
  Transmission Date: 20050727
  Serious: Yes (Disabling, Other)
  Sender: FDA-Public Use
  Company Number: A-US2005-08603

PATIENT
  Age: 66 Year
  Sex: Female

DRUGS (7)
  1. TRACLEER [Suspect]
     Indication: PULMONARY HYPERTENSION
     Dosage: 125 MG, BID, ORAL; 62.5 MG, BID, ORAL; ORAL
     Route: 048
     Dates: start: 20041101, end: 20041214
  2. TRACLEER [Suspect]
     Indication: PULMONARY HYPERTENSION
     Dosage: 125 MG, BID, ORAL; 62.5 MG, BID, ORAL; ORAL
     Route: 048
     Dates: start: 20041215, end: 20050116
  3. TRACLEER [Suspect]
     Indication: PULMONARY HYPERTENSION
     Dosage: 125 MG, BID, ORAL; 62.5 MG, BID, ORAL; ORAL
     Route: 048
     Dates: start: 20050101
  4. TAMBOCOR [Concomitant]
  5. NORVASC [Concomitant]
  6. PREVACID [Concomitant]
  7. LASIX [Concomitant]

REACTIONS (5)
  - ARTHRALGIA [None]
  - ASTHENIA [None]
  - CONDITION AGGRAVATED [None]
  - PAIN IN EXTREMITY [None]
  - PULMONARY HYPERTENSION [None]
